FAERS Safety Report 19266438 (Version 3)
Quarter: 2021Q3

REPORT INFORMATION
  Report Type: Report from Study
  Country: GB (occurrence: GB)
  Receive Date: 20210517
  Receipt Date: 20210702
  Transmission Date: 20211014
  Serious: Yes (Other)
  Sender: FDA-Public Use
  Company Number: NVSC2021GB106868

PATIENT
  Sex: Female

DRUGS (1)
  1. HYRIMOZ [Suspect]
     Active Substance: ADALIMUMAB-ADAZ
     Indication: RHEUMATOID ARTHRITIS
     Dosage: 40 MG, BIW (FORTNIGHTLY)
     Route: 058
     Dates: start: 20210401

REACTIONS (9)
  - Depression [Unknown]
  - Chronic obstructive pulmonary disease [Unknown]
  - Pain [Unknown]
  - Lower respiratory tract infection [Unknown]
  - Dyspnoea [Unknown]
  - Arthritis [Unknown]
  - Malaise [Unknown]
  - Decreased appetite [Unknown]
  - Contusion [Unknown]
